FAERS Safety Report 11755538 (Version 2)
Quarter: 2016Q1

REPORT INFORMATION
  Report Type: Spontaneous
  Country: US (occurrence: US)
  Receive Date: 20151119
  Receipt Date: 20160111
  Transmission Date: 20160525
  Serious: No
  Sender: FDA-Public Use
  Company Number: US-PFIZER INC-2015379681

PATIENT
  Age: 9 Year
  Sex: Male
  Weight: 41 kg

DRUGS (1)
  1. CHILDRENS ADVIL [Suspect]
     Active Substance: IBUPROFEN
     Indication: PYREXIA
     Dosage: 2.5 TEASPOONS, SINGLE
     Route: 048
     Dates: start: 20151102, end: 20151102

REACTIONS (3)
  - Crying [Unknown]
  - Throat irritation [Unknown]
  - Nasal discomfort [Unknown]

NARRATIVE: CASE EVENT DATE: 20151102
